FAERS Safety Report 12080929 (Version 1)
Quarter: 2016Q1

REPORT INFORMATION
  Report Type: Spontaneous
  Country: US (occurrence: US)
  Receive Date: 20160216
  Receipt Date: 20160216
  Transmission Date: 20160526
  Serious: No
  Sender: FDA-Public Use
  Company Number: US-PFIZER INC-2016066818

PATIENT
  Age: 76 Year
  Sex: Male
  Weight: 73 kg

DRUGS (1)
  1. ADVIL [Suspect]
     Active Substance: IBUPROFEN
     Dosage: 200 MG, UNK
     Route: 048
     Dates: start: 20160131, end: 20160201

REACTIONS (11)
  - Secretion discharge [Unknown]
  - Discomfort [Unknown]
  - Lip swelling [Recovering/Resolving]
  - Urticaria [Not Recovered/Not Resolved]
  - Pruritus [Not Recovered/Not Resolved]
  - Pain [Not Recovered/Not Resolved]
  - Erythema [Unknown]
  - Hypersensitivity [Not Recovered/Not Resolved]
  - Gastrooesophageal reflux disease [Recovering/Resolving]
  - Aphasia [Recovering/Resolving]
  - Dysphonia [Unknown]

NARRATIVE: CASE EVENT DATE: 20160201
